FAERS Safety Report 15875627 (Version 1)
Quarter: 2019Q1

REPORT INFORMATION
  Report Type: Other
  Country: US (occurrence: US)
  Receive Date: 20190126
  Receipt Date: 20190126
  Transmission Date: 20190417
  Serious: No
  Sender: FDA-Public Use
  Company Number: US-ACORDA-ACO_154765_2018

PATIENT
  Age: 58 Year
  Sex: Female

DRUGS (2)
  1. AMPYRA [Suspect]
     Active Substance: DALFAMPRIDINE
     Indication: MULTIPLE SCLEROSIS
     Dosage: 10 MILLIGRAM, BID
     Route: 048
     Dates: start: 20130724
  2. TECFIDERA [Suspect]
     Active Substance: DIMETHYL FUMARATE
     Indication: MULTIPLE SCLEROSIS
     Dosage: UNK
     Route: 065

REACTIONS (8)
  - Pain in extremity [Unknown]
  - Paraesthesia [Unknown]
  - Cataract [Unknown]
  - Arthralgia [Unknown]
  - Diplopia [Unknown]
  - Abdominal discomfort [Unknown]
  - Vision blurred [Unknown]
  - Headache [Unknown]

NARRATIVE: CASE EVENT DATE: 201810
